FAERS Safety Report 4832170-5 (Version None)
Quarter: 2005Q4

REPORT INFORMATION
  Report Type: 
  Country: None (occurrence: None)
  Receive Date: 20051118
  Receipt Date: 20050930
  Transmission Date: 20060501
  Serious: Yes (Other)
  Sender: FDA-Public Use
  Company Number: US-MERCK-0510USA01868

PATIENT
  Age: 70 Year
  Sex: Female
  Weight: 73 kg

DRUGS (7)
  1. VIOXX [Suspect]
     Route: 048
     Dates: start: 20021011, end: 20041101
  2. DETROL LA [Concomitant]
     Route: 065
  3. DIAZEPAM [Concomitant]
     Route: 065
  4. DOXAZOSIN MESYLATE [Concomitant]
     Route: 065
  5. NAMENDA [Concomitant]
     Route: 065
  6. PLAVIX [Concomitant]
     Route: 065
  7. PREMARIN [Concomitant]
     Route: 065

REACTIONS (1)
  - ISCHAEMIC STROKE [None]
